FAERS Safety Report 7306014-6 (Version None)
Quarter: 2011Q1

REPORT INFORMATION
  Report Type: 
  Country: None (occurrence: None)
  Receive Date: 20110210
  Receipt Date: 20110202
  Transmission Date: 20110831
  Serious: Yes (Other)
  Sender: FDA-Public Use
  Company Number: ABR_00008_2011

PATIENT
  Age: 31 Year
  Sex: Female

DRUGS (2)
  1. DROSPRENONE W/ETHINYLESTRADIOL  (DROSPIRENONE W/ETHINYLESTRADIOL) [Suspect]
     Indication: CONTRACEPTION
     Dosage: 1 DF QD ORAL
     Route: 048
     Dates: start: 20100520, end: 20101001
  2. ERYTHROMYCIN [Suspect]
     Indication: ACNE
     Dosage: 500 MG BID ORAL
     Route: 048
     Dates: start: 20100615, end: 20101001

REACTIONS (2)
  - PREGNANCY ON ORAL CONTRACEPTIVE [None]
  - DRUG INTERACTION [None]
